FAERS Safety Report 6790051-4 (Version None)
Quarter: 2010Q2

REPORT INFORMATION
  Report Type: 
  Country: None (occurrence: None)
  Receive Date: 20100624
  Receipt Date: 20100622
  Transmission Date: 20101027
  Serious: Yes (Death)
  Sender: FDA-Public Use
  Company Number: PHHY2010US32230

PATIENT
  Sex: Female
  Weight: 85 kg

DRUGS (1)
  1. SANDOSTATIN LAR [Suspect]
     Indication: GASTRINOMA
     Dosage: 30 MG, PER 28 DAYS
     Route: 030
     Dates: start: 20080601, end: 20100301

REACTIONS (1)
  - MALIGNANT NEOPLASM PROGRESSION [None]
